FAERS Safety Report 9366491 (Version 1)
Quarter: 2013Q2

REPORT INFORMATION
  Report Type: Spontaneous
  Country: CA (occurrence: CA)
  Receive Date: 20130625
  Receipt Date: 20130625
  Transmission Date: 20140414
  Serious: No
  Sender: FDA-Public Use
  Company Number: CA-JNJFOC-20130407170

PATIENT
  Sex: Female

DRUGS (1)
  1. DURAGESIC MATRIX [Suspect]
     Indication: PRODUCT USED FOR UNKNOWN INDICATION
     Route: 062

REACTIONS (2)
  - Wrong technique in drug usage process [Unknown]
  - Product outer packaging issue [Unknown]
